FAERS Safety Report 12324649 (Version 1)
Quarter: 2016Q2

REPORT INFORMATION
  Report Type: Other
  Country: RU (occurrence: RU)
  Receive Date: 20160502
  Receipt Date: 20160502
  Transmission Date: 20160815
  Serious: Yes (Other)
  Sender: FDA-Public Use
  Company Number: RU-MDT-ADR-2016-00784

PATIENT
  Age: 7 Year

DRUGS (1)
  1. BACLOFEN. [Suspect]
     Active Substance: BACLOFEN
     Route: 037

REACTIONS (3)
  - Device allergy [Unknown]
  - Implant site extravasation [Unknown]
  - Body temperature increased [Recovered/Resolved]
